FAERS Safety Report 20219167 (Version 4)
Quarter: 2022Q1

REPORT INFORMATION
  Report Type: Report from Study
  Country: CN (occurrence: CN)
  Receive Date: 20211222
  Receipt Date: 20220209
  Transmission Date: 20220423
  Serious: Yes (Death, Hospitalization)
  Sender: FDA-Public Use
  Company Number: CN-PFIZER INC-202101807773

PATIENT
  Age: 58 Year
  Sex: Female
  Weight: 58.9 kg

DRUGS (6)
  1. PALBOCICLIB [Suspect]
     Active Substance: PALBOCICLIB
     Indication: Breast cancer
     Dosage: 125 MG, 1X/DAY
     Route: 048
     Dates: start: 20211014, end: 20211020
  2. PALBOCICLIB [Suspect]
     Active Substance: PALBOCICLIB
     Dosage: 125 MG, 1X/DAY
     Route: 048
     Dates: start: 20211028, end: 20211117
  3. PALBOCICLIB [Suspect]
     Active Substance: PALBOCICLIB
     Dosage: 125 MG, 1X/DAY
     Route: 048
     Dates: start: 20211125, end: 20211207
  4. D-0502 [Suspect]
     Active Substance: D-0502
     Indication: Breast cancer
     Dosage: 150 MILLIGRAM, QD
     Route: 048
     Dates: start: 20211028, end: 20211028
  5. D-0502 [Suspect]
     Active Substance: D-0502
     Dosage: 150 MG, 2X/DAY
     Route: 048
     Dates: start: 20211029, end: 20211124
  6. D-0502 [Suspect]
     Active Substance: D-0502
     Dosage: 150 MG, 2X/DAY
     Route: 048
     Dates: start: 20211125, end: 20211207

REACTIONS (1)
  - Pneumonia [Fatal]

NARRATIVE: CASE EVENT DATE: 20211206
